FAERS Safety Report 12848930 (Version 1)
Quarter: 2016Q4

REPORT INFORMATION
  Report Type: Spontaneous
  Country: US (occurrence: US)
  Receive Date: 20161014
  Receipt Date: 20161014
  Transmission Date: 20170207
  Serious: Yes (Life-Threatening)
  Sender: FDA-Public Use
  Company Number: US-FRESENIUS KABI-FK201607654

PATIENT
  Age: 13 Month
  Sex: Female

DRUGS (4)
  1. METHYLPREDNISOLONE (MANUFACTURER UNKNOWN) [Suspect]
     Active Substance: METHYLPREDNISOLONE
     Indication: AUTOIMMUNE HAEMOLYTIC ANAEMIA
     Route: 065
  2. HEPATITIS A VACCINE NOS [Concomitant]
     Active Substance: HEPATITIS A VACCINE, INACTIVATED
     Indication: IMMUNISATION
     Route: 065
  3. ROTAVIRUS VACCINE [Concomitant]
     Active Substance: HUMAN ROTAVIRUS A
     Indication: IMMUNISATION
     Route: 065
  4. MMR VACCINE [Suspect]
     Active Substance: MEASLES-MUMPS-RUBELLA VIRUS VACCINE, LIVE
     Indication: IMMUNISATION
     Route: 065

REACTIONS (8)
  - Disseminated varicella zoster vaccine virus infection [Fatal]
  - Mumps [Not Recovered/Not Resolved]
  - Immune thrombocytopenic purpura [Unknown]
  - Rubella [Not Recovered/Not Resolved]
  - Disseminated intravascular coagulation [Fatal]
  - Renal failure [Fatal]
  - Lymphopenia [Recovered/Resolved]
  - Hepatic failure [Fatal]
